FAERS Safety Report 7733453-1 (Version None)
Quarter: 2011Q3

REPORT INFORMATION
  Report Type: 
  Country: None (occurrence: None)
  Receive Date: 20110907
  Receipt Date: 20110901
  Transmission Date: 20111222
  Serious: Yes (Hospitalization)
  Sender: FDA-Public Use
  Company Number: NL-CELGENEUS-114-21880-11090052

PATIENT
  Sex: Female
  Weight: 81 kg

DRUGS (22)
  1. FUROSEMIDE [Concomitant]
     Route: 041
     Dates: start: 20110811, end: 20110817
  2. NADROPARIN [Concomitant]
     Route: 058
     Dates: start: 20110804
  3. NEXIUM [Concomitant]
     Dosage: 40 MILLIGRAM
     Route: 041
     Dates: start: 20110901, end: 20110901
  4. REVLIMID [Suspect]
     Dosage: 25 MILLIGRAM
     Route: 048
     Dates: start: 20110527
  5. DEXAMETHASONE [Suspect]
     Indication: MULTIPLE MYELOMA
     Route: 048
     Dates: start: 20110527, end: 20110803
  6. DARBEPOETIN ALFA [Concomitant]
     Route: 058
     Dates: start: 20110808, end: 20110808
  7. POLYETHYLENE GLYCOL [Concomitant]
     Route: 048
     Dates: start: 20110818, end: 20110822
  8. ACETAMINOPHEN [Concomitant]
     Route: 054
     Dates: start: 20110816
  9. REVLIMID [Suspect]
     Indication: MULTIPLE MYELOMA
     Dosage: 10 MILLIGRAM
     Route: 048
     Dates: start: 20110723, end: 20110803
  10. FLUCONAZOLE [Concomitant]
     Route: 048
     Dates: start: 20110822, end: 20110822
  11. FUROSEMIDE [Concomitant]
     Route: 048
     Dates: start: 20110817, end: 20110817
  12. SODIUM HYPOCHLORITE [Concomitant]
     Route: 003
     Dates: start: 20110822, end: 20110826
  13. DARBEPOETIN ALFA [Concomitant]
     Route: 058
     Dates: start: 20110812, end: 20110812
  14. POTASSIUM CHLORIDE [Concomitant]
     Dosage: 1800 MILLIGRAM
     Route: 048
     Dates: start: 20110806, end: 20110819
  15. POTASSIUM CHLORIDE [Concomitant]
     Dosage: 30 MILLIMOLE
     Route: 041
     Dates: start: 20110825, end: 20110902
  16. LISINOPRIL [Concomitant]
     Route: 048
     Dates: start: 20110819, end: 20110819
  17. METOCLOPRAMIDE [Concomitant]
     Route: 030
     Dates: start: 20110803, end: 20110819
  18. HYDROCHLORTHIAZID [Concomitant]
     Route: 048
     Dates: start: 20110810, end: 20110812
  19. METOCLOPRAMIDE [Concomitant]
     Route: 048
     Dates: start: 20110819, end: 20110819
  20. NADROPARIN [Concomitant]
     Route: 058
     Dates: start: 20110804, end: 20110804
  21. NIFEDIPINE [Concomitant]
     Route: 048
     Dates: start: 20110810, end: 20110812
  22. CLISMA FOSFATO SODICO [Concomitant]
     Route: 054
     Dates: start: 20110818, end: 20110901

REACTIONS (1)
  - COLON CANCER [None]
